FAERS Safety Report 16971407 (Version 2)
Quarter: 2019Q4

REPORT INFORMATION
  Report Type: Spontaneous
  Country: DE (occurrence: DE)
  Receive Date: 20191029
  Receipt Date: 20191112
  Transmission Date: 20200122
  Serious: Yes (Hospitalization, Other)
  Sender: FDA-Public Use
  Company Number: DE-JNJFOC-20191026891

PATIENT
  Age: 4 Decade
  Sex: Male
  Weight: 80 kg

DRUGS (1)
  1. TREMFYA [Suspect]
     Active Substance: GUSELKUMAB
     Indication: PSORIASIS
     Route: 065
     Dates: start: 20180410, end: 201906

REACTIONS (2)
  - Hepatitis [Recovered/Resolved]
  - Pneumonia [Recovered/Resolved]
